FAERS Safety Report 15367050 (Version 1)
Quarter: 2018Q3

REPORT INFORMATION
  Report Type: Spontaneous
  Country: US (occurrence: US)
  Receive Date: 20180903
  Receipt Date: 20180903
  Transmission Date: 20181010
  Serious: No
  Sender: FDA-Public Use
  Company Number: None

PATIENT
  Age: 18 Year
  Sex: Female
  Weight: 54 kg

DRUGS (4)
  1. VENLAFAXINE ER 75 MG CAPSULES. [Suspect]
     Active Substance: VENLAFAXINE HYDROCHLORIDE
     Indication: DEPRESSION
     Dosage: ?          QUANTITY:1 CAPSULE(S);?
     Route: 048
     Dates: start: 20180802, end: 20180902
  2. EXCEDRIN MIGRAINE [Concomitant]
     Active Substance: ACETAMINOPHEN\ASPIRIN\CAFFEINE
  3. IBUPROFEN. [Concomitant]
     Active Substance: IBUPROFEN
  4. ADVIL [Concomitant]
     Active Substance: IBUPROFEN

REACTIONS (10)
  - Vomiting [None]
  - Panic attack [None]
  - Product substitution [None]
  - Malaise [None]
  - Nausea [None]
  - Diarrhoea [None]
  - Anxiety [None]
  - Migraine [None]
  - Mood swings [None]
  - Paraesthesia [None]

NARRATIVE: CASE EVENT DATE: 20180802
